FAERS Safety Report 18781239 (Version 1)
Quarter: 2021Q1

REPORT INFORMATION
  Report Type: Spontaneous
  Country: US (occurrence: US)
  Receive Date: 20210122
  Receipt Date: 20210122
  Transmission Date: 20210419
  Serious: Yes (Hospitalization)
  Sender: FDA-Public Use
  Company Number: None

PATIENT
  Age: 55 Year
  Sex: Female
  Weight: 51.7 kg

DRUGS (10)
  1. CYTOXAN [Suspect]
     Active Substance: CYCLOPHOSPHAMIDE
  2. FAMCICLOVIR. [Suspect]
     Active Substance: FAMCICLOVIR
  3. HYDROCORTISONE CREAM [Concomitant]
     Active Substance: HYDROCORTISONE
  4. COMPAZINE [Concomitant]
     Active Substance: PROCHLORPERAZINE MALEATE
  5. ATIVAN [Concomitant]
     Active Substance: LORAZEPAM
  6. MEDI4736 DURVALUMAB [Suspect]
     Active Substance: DURVALUMAB
     Indication: BREAST CANCER
     Route: 042
     Dates: start: 20180110, end: 20180517
  7. NEULASTA [Concomitant]
     Active Substance: PEGFILGRASTIM
  8. ADRIAMYCIN [Suspect]
     Active Substance: DOXORUBICIN HYDROCHLORIDE
  9. ZOFRAN [Concomitant]
     Active Substance: ONDANSETRON HYDROCHLORIDE
  10. REMERON [Concomitant]
     Active Substance: MIRTAZAPINE

REACTIONS (9)
  - Ocular hyperaemia [None]
  - Ear pain [None]
  - Pyrexia [None]
  - Febrile neutropenia [None]
  - Eyelid margin crusting [None]
  - Oropharyngeal pain [None]
  - Eye pain [None]
  - Lacrimation increased [None]
  - Haemoglobin decreased [None]

NARRATIVE: CASE EVENT DATE: 20180524
